FAERS Safety Report 8894440 (Version 1)
Quarter: 2012Q4

REPORT INFORMATION
  Report Type: 
  Country: US (occurrence: US)
  Receive Date: 20121107
  Receipt Date: 20121107
  Transmission Date: 20130627
  Serious: No
  Sender: FDA-Public Use
  Company Number: US-AMGEN-USASP2011050610

PATIENT
  Age: 58 Year
  Sex: Male

DRUGS (10)
  1. ENBREL [Suspect]
     Dosage: 50 mg, qwk
  2. MOTRIN [Concomitant]
     Dosage: 200 mg, UNK
  3. ASA [Concomitant]
     Dosage: 81 mg, UNK
  4. VITAMIN D /00107901/ [Concomitant]
  5. TYLENOL /00020001/ [Concomitant]
     Dosage: 325 mg, UNK
  6. ZOLPIDEM [Concomitant]
     Dosage: 5 mg, UNK
  7. PREDNISONE [Concomitant]
     Dosage: 2.5 mg, UNK
  8. FOLIC ACID [Concomitant]
     Dosage: 1 mg, UNK
  9. METHOTREXATE [Concomitant]
     Dosage: 2.5 mg, UNK
  10. MELOXICAM [Concomitant]
     Dosage: 15 mg, UNK

REACTIONS (2)
  - Injection site haemorrhage [Unknown]
  - Injection site reaction [Unknown]
